FAERS Safety Report 11376999 (Version 1)
Quarter: 2015Q3

REPORT INFORMATION
  Report Type: Other
  Country: BR (occurrence: BR)
  Receive Date: 20150813
  Receipt Date: 20150813
  Transmission Date: 20151125
  Serious: Yes (Hospitalization)
  Sender: FDA-Public Use
  Company Number: BR-SHIRE-BR201509966

PATIENT
  Sex: Male

DRUGS (1)
  1. ELAPRASE [Suspect]
     Active Substance: IDURSULFASE
     Indication: MUCOPOLYSACCHARIDOSIS II
     Dosage: 12 MG (2 VIALS), 1X/WEEK
     Route: 041

REACTIONS (1)
  - Feeding tube complication [Recovering/Resolving]
